FAERS Safety Report 4913903-6 (Version None)
Quarter: 2006Q1

REPORT INFORMATION
  Report Type: 
  Country: None (occurrence: None)
  Receive Date: 20060216
  Receipt Date: 20051004
  Transmission Date: 20060701
  Serious: Yes (Hospitalization, Disabling, Other)
  Sender: FDA-Public Use
  Company Number: US-MERCK-0510USA03629

PATIENT
  Age: 61 Year
  Sex: Male
  Weight: 107 kg

DRUGS (8)
  1. VIOXX [Suspect]
     Indication: BACK PAIN
     Route: 048
     Dates: start: 20010804, end: 20040801
  2. ADALAT [Concomitant]
     Route: 065
  3. LASIX [Concomitant]
     Indication: HYPERTENSION
     Route: 065
  4. LASIX [Concomitant]
     Indication: OEDEMA
     Route: 065
  5. PRINIVIL [Concomitant]
     Route: 065
  6. LOPROX [Concomitant]
     Route: 065
  7. TOPROL-XL [Concomitant]
     Route: 065
  8. WELLBUTRIN [Concomitant]
     Indication: EX-SMOKER
     Route: 065

REACTIONS (8)
  - ARTERIOSCLEROSIS [None]
  - BLOOD CHOLESTEROL INCREASED [None]
  - COUGH [None]
  - DIABETES MELLITUS [None]
  - GASTROOESOPHAGEAL REFLUX DISEASE [None]
  - MYOCARDIAL INFARCTION [None]
  - NASOPHARYNGITIS [None]
  - VASCULAR BYPASS GRAFT [None]
